FAERS Safety Report 17465262 (Version 1)
Quarter: 2020Q1

REPORT INFORMATION
  Report Type: Spontaneous
  Country: US (occurrence: US)
  Receive Date: 20200227
  Receipt Date: 20200227
  Transmission Date: 20200409
  Serious: Yes (Hospitalization)
  Sender: FDA-Public Use
  Company Number: US-CIPLA LTD.-2020US01277

PATIENT

DRUGS (7)
  1. CLOZAPINE. [Concomitant]
     Active Substance: CLOZAPINE
     Indication: PANIC ATTACK
     Dosage: 1 MILLIGRAM, PRN (1 MG / 3 TIMES A MONTH)
     Route: 065
  2. GABAPENTIN. [Suspect]
     Active Substance: GABAPENTIN
     Indication: IMPAIRED GASTRIC EMPTYING
     Dosage: 100 MILLIGRAM, TID
     Route: 048
     Dates: start: 20191115
  3. LEXAPRO [Concomitant]
     Active Substance: ESCITALOPRAM OXALATE
     Indication: PRODUCT USED FOR UNKNOWN INDICATION
     Dosage: 10 MILLIGRAM, QD
     Route: 065
     Dates: start: 2013
  4. ADDERALL [Concomitant]
     Active Substance: AMPHETAMINE ASPARTATE\AMPHETAMINE SULFATE\DEXTROAMPHETAMINE SACCHARATE\DEXTROAMPHETAMINE SULFATE
     Indication: PRODUCT USED FOR UNKNOWN INDICATION
     Dosage: 20 MILLIGRAM, TID
     Route: 065
  5. GABAPENTIN. [Suspect]
     Active Substance: GABAPENTIN
     Dosage: 200 MG IN THE MORNING AND AFTERNOON FOLLOWED BY 600 MG AT NIGHT
     Route: 048
  6. GABAPENTIN. [Suspect]
     Active Substance: GABAPENTIN
     Indication: GASTROINTESTINAL MOTILITY DISORDER
     Dosage: WENT UP TO 200 MG THRICE A DAY
     Route: 048
  7. GABAPENTIN. [Suspect]
     Active Substance: GABAPENTIN
     Dosage: 300 MILLIGRAM, TID
     Route: 048

REACTIONS (9)
  - Heart rate decreased [Unknown]
  - Weight decreased [Unknown]
  - Off label use [Unknown]
  - Feeling abnormal [Unknown]
  - Somnolence [Unknown]
  - Coordination abnormal [Unknown]
  - Ill-defined disorder [Unknown]
  - Blood pressure decreased [Unknown]
  - Product use in unapproved indication [Unknown]

NARRATIVE: CASE EVENT DATE: 20191115
